FAERS Safety Report 8057423-1 (Version None)
Quarter: 2012Q1

REPORT INFORMATION
  Report Type: 
  Country: None (occurrence: None)
  Receive Date: 20120119
  Receipt Date: 20120118
  Transmission Date: 20120608
  Serious: Yes (Other)
  Sender: FDA-Public Use
  Company Number: US-ROCHE-783934

PATIENT
  Sex: Female
  Weight: 49.94 kg

DRUGS (3)
  1. ACCUTANE [Suspect]
     Indication: ACNE
     Route: 065
     Dates: start: 20020101, end: 20030101
  2. YASMIN [Concomitant]
  3. IMITREX [Concomitant]

REACTIONS (4)
  - CROHN'S DISEASE [None]
  - COLITIS [None]
  - STRESS [None]
  - INFLAMMATORY BOWEL DISEASE [None]
